FAERS Safety Report 19245840 (Version 1)
Quarter: 2021Q2

REPORT INFORMATION
  Report Type: Spontaneous
  Country: FR (occurrence: FR)
  Receive Date: 20210512
  Receipt Date: 20210512
  Transmission Date: 20210717
  Serious: Yes (Other)
  Sender: FDA-Public Use
  Company Number: FR-AUROBINDO-AUR-APL-2021-019248

PATIENT
  Age: 69 Year
  Sex: Female
  Weight: 66 kg

DRUGS (6)
  1. KEYTRUDA [Suspect]
     Active Substance: PEMBROLIZUMAB
     Dosage: 200 MILLIGRAM
     Route: 042
     Dates: start: 20210317, end: 20210317
  2. PEMETREXED. [Suspect]
     Active Substance: PEMETREXED
     Indication: LUNG ADENOCARCINOMA RECURRENT
     Dosage: 870 MILLIGRAM
     Route: 042
     Dates: start: 20210219, end: 20210219
  3. CARBOPLATIN. [Suspect]
     Active Substance: CARBOPLATIN
     Indication: LUNG ADENOCARCINOMA RECURRENT
     Dosage: 775 MILLIGRAM
     Route: 042
     Dates: start: 20210219, end: 20210219
  4. KEYTRUDA [Suspect]
     Active Substance: PEMBROLIZUMAB
     Indication: LUNG ADENOCARCINOMA RECURRENT
     Dosage: 200 MILLIGRAM
     Route: 042
     Dates: start: 20210219, end: 20210219
  5. CARBOPLATIN. [Suspect]
     Active Substance: CARBOPLATIN
     Dosage: 775 MILLIGRAM
     Route: 042
     Dates: start: 20210317, end: 20210317
  6. PEMETREXED. [Suspect]
     Active Substance: PEMETREXED
     Dosage: 870 MILLIGRAM
     Route: 042
     Dates: start: 20210317, end: 20210317

REACTIONS (1)
  - Lichen sclerosus [Not Recovered/Not Resolved]

NARRATIVE: CASE EVENT DATE: 20210321
